FAERS Safety Report 9200099 (Version 3)
Quarter: 2014Q1

REPORT INFORMATION
  Report Type: Spontaneous
  Country: US (occurrence: US)
  Receive Date: 20130329
  Receipt Date: 20140311
  Transmission Date: 20141002
  Serious: Yes (Hospitalization, Other)
  Sender: FDA-Public Use
  Company Number: US-AMGEN-USASP2013020805

PATIENT
  Age: 70 Year
  Sex: Female

DRUGS (2)
  1. ENBREL [Suspect]
     Indication: PSORIASIS
     Dosage: 50 MG, QWK
     Route: 065
     Dates: start: 20130307, end: 201303
  2. AZATHIOPRINE [Suspect]
     Indication: PRODUCT USED FOR UNKNOWN INDICATION
     Dosage: UNK
     Route: 065

REACTIONS (10)
  - Generalised oedema [Recovered/Resolved]
  - Abasia [Recovered/Resolved]
  - Cardiac failure [Not Recovered/Not Resolved]
  - Abdominal pain upper [Recovered/Resolved]
  - Local swelling [Recovered/Resolved]
  - Adverse drug reaction [Recovered/Resolved]
  - Rash [Recovered/Resolved]
  - Rhinorrhoea [Not Recovered/Not Resolved]
  - Swelling [Recovered/Resolved]
  - Psoriasis [Not Recovered/Not Resolved]
